FAERS Safety Report 6655173-7 (Version None)
Quarter: 2010Q1

REPORT INFORMATION
  Report Type: 
  Country: None (occurrence: None)
  Receive Date: 20100324
  Receipt Date: 20100316
  Transmission Date: 20100710
  Serious: Yes (Hospitalization)
  Sender: FDA-Public Use
  Company Number: 2009SP017431

PATIENT
  Age: 31 Year
  Sex: Female

DRUGS (2)
  1. NUVARING [Suspect]
     Indication: CONTRACEPTION
     Dosage: QM; VAG
     Route: 067
     Dates: start: 20051001, end: 20060901
  2. HYDROCODONE BITARTRATE AND ACETAMINOPHEN [Concomitant]

REACTIONS (9)
  - ACCIDENT [None]
  - HEADACHE [None]
  - LIPOSARCOMA [None]
  - MENORRHAGIA [None]
  - PAIN [None]
  - PARONYCHIA [None]
  - PLANTAR FASCIITIS [None]
  - PULMONARY EMBOLISM [None]
  - UTERINE PROLAPSE [None]
